FAERS Safety Report 5516475-0 (Version None)
Quarter: 2007Q4

REPORT INFORMATION
  Report Type: 
  Country: None (occurrence: None)
  Receive Date: 20071114
  Receipt Date: 20070302
  Transmission Date: 20080405
  Serious: No
  Sender: FDA-Public Use
  Company Number: A0641438A

PATIENT
  Age: 48 Year
  Sex: Male

DRUGS (1)
  1. COMMIT [Suspect]
     Dates: start: 20070226, end: 20070228

REACTIONS (8)
  - AGEUSIA [None]
  - DRUG INEFFECTIVE [None]
  - GLOSSODYNIA [None]
  - HEART RATE INCREASED [None]
  - NERVOUSNESS [None]
  - ORAL DISCOMFORT [None]
  - TONGUE DISORDER [None]
  - TREMOR [None]
